FAERS Safety Report 23451149 (Version 1)
Quarter: 2024Q1

REPORT INFORMATION
  Report Type: Spontaneous
  Country: IT (occurrence: IT)
  Receive Date: 20240129
  Receipt Date: 20240129
  Transmission Date: 20240409
  Serious: Yes (Other)
  Sender: FDA-Public Use
  Company Number: IT-FreseniusKabi-FK202400756

PATIENT

DRUGS (7)
  1. IRINOTECAN HYDROCHLORIDE [Suspect]
     Active Substance: IRINOTECAN HYDROCHLORIDE
     Indication: Product used for unknown indication
     Dosage: FOLFOXIRI COMBINATION:FOLINIC ACID, 5-FLUOROURACIL, OXALIPLATIN AND IRINOTECAN
  2. LEUCOVORIN CALCIUM [Suspect]
     Active Substance: LEUCOVORIN CALCIUM
     Indication: Product used for unknown indication
     Dosage: DRUGS IN THE FOLFOX COMBINATION:FOL = LEUCOVORIN CALCIUM (FOLINIC ACID) F = FLUOROURACIL OX = OXALIP
  3. LEUCOVORIN CALCIUM [Suspect]
     Active Substance: LEUCOVORIN CALCIUM
     Dosage: FOLFOXIRI COMBINATION:FOLINIC ACID, 5-FLUOROURACIL, OXALIPLATIN AND IRINOTECAN
  4. OXALIPLATIN [Suspect]
     Active Substance: OXALIPLATIN
     Indication: Product used for unknown indication
     Dosage: DRUGS IN THE FOLFOX COMBINATION:FOL = LEUCOVORIN CALCIUM (FOLINIC ACID) F = FLUOROURACIL OX = OXALIP
  5. OXALIPLATIN [Suspect]
     Active Substance: OXALIPLATIN
     Dosage: FOLFOXIRI COMBINATION:FOLINIC ACID, 5-FLUOROURACIL, OXALIPLATIN AND IRINOTECAN
  6. FLUOROURACIL [Suspect]
     Active Substance: FLUOROURACIL
     Indication: Product used for unknown indication
     Dosage: FOLFOXIRI COMBINATION:FOLINIC ACID, 5-FLUOROURACIL, OXALIPLATIN AND IRINOTECAN
  7. FLUOROURACIL [Suspect]
     Active Substance: FLUOROURACIL
     Dosage: DRUGS IN THE FOLFOX COMBINATION:FOL = LEUCOVORIN CALCIUM (FOLINIC ACID) F = FLUOROURACIL OX = OXALIP

REACTIONS (10)
  - Asthenia [Unknown]
  - Hyperpyrexia [Unknown]
  - Hepatomegaly [Unknown]
  - Bronchitis [Unknown]
  - Pain [Unknown]
  - Oedema peripheral [Unknown]
  - Lymphadenopathy [Unknown]
  - Paraesthesia [Unknown]
  - Hypoaesthesia [Unknown]
  - Mucosal inflammation [Unknown]
